FAERS Safety Report 7761426-1 (Version None)
Quarter: 2011Q3

REPORT INFORMATION
  Report Type: 
  Country: None (occurrence: None)
  Receive Date: 20110920
  Receipt Date: 20110909
  Transmission Date: 20111222
  Serious: Yes (Other)
  Sender: FDA-Public Use
  Company Number: US-PERRIGO-11US006183

PATIENT
  Age: 22 Year
  Sex: Male
  Weight: 97.506 kg

DRUGS (2)
  1. IBUPROFEN AND DIPHENHYDRAMINE [Suspect]
     Indication: HEADACHE
     Dosage: 2 TABLETS, SINGLE
     Route: 048
     Dates: start: 20110724, end: 20110724
  2. IBUPROFEN AND DIPHENHYDRAMINE [Suspect]
     Indication: INSOMNIA

REACTIONS (3)
  - DRUG EFFECT INCREASED [None]
  - AGGRESSION [None]
  - ABNORMAL BEHAVIOUR [None]
